FAERS Safety Report 8875552 (Version 1)
Quarter: 2012Q4

REPORT INFORMATION
  Report Type: 
  Country: DE (occurrence: DE)
  Receive Date: 20121030
  Receipt Date: 20121030
  Transmission Date: 20130627
  Serious: Yes (Other)
  Sender: FDA-Public Use
  Company Number: DE-B.I. PHARMACEUTICALS,INC./RIDGEFIELD-2012-EU-05327GD

PATIENT
  Sex: Female

DRUGS (6)
  1. FLUTICASONE [Suspect]
     Indication: ASTHMA
  2. NIFEDIPINE [Suspect]
     Indication: HYPERTENSION
     Dosage: 10 mg
  3. THYROXINE [Suspect]
     Indication: HYPOTHYROIDISM
     Dosage: 125 mcg
  4. SIFROL [Suspect]
     Indication: RESTLESS LEGS SYNDROME
     Dosage: 0.7 mg
  5. FENOTEROL [Suspect]
     Indication: ASTHMA
  6. UNSPECIFIED INGREDIENT [Suspect]
     Indication: RESTLESS LEGS SYNDROME
     Dosage: levodopa/carbidopa 1000/100 mg increased to 1250/125 mg

REACTIONS (1)
  - Gestational diabetes [Unknown]
